FAERS Safety Report 9952877 (Version 2)
Quarter: 2014Q1

REPORT INFORMATION
  Report Type: Spontaneous
  Country: PR (occurrence: PR)
  Receive Date: 20140304
  Receipt Date: 20140304
  Transmission Date: 20141002
  Serious: No
  Sender: FDA-Public Use
  Company Number: PR-ABBVIE-13P-131-1045633-00

PATIENT
  Sex: Female
  Weight: 66.74 kg

DRUGS (13)
  1. HUMIRA [Suspect]
     Indication: RHEUMATOID ARTHRITIS
     Route: 058
     Dates: end: 201201
  2. HUMIRA [Suspect]
     Route: 058
     Dates: start: 201201
  3. ATENOLOL [Concomitant]
     Indication: HYPERTENSION
     Route: 048
  4. FOLIC ACID [Concomitant]
     Indication: PRODUCT USED FOR UNKNOWN INDICATION
     Route: 048
  5. TRAMADOL [Concomitant]
     Indication: PAIN
     Dosage: AS NEEDED
     Route: 048
  6. ASPIRIN [Concomitant]
     Indication: PRODUCT USED FOR UNKNOWN INDICATION
     Route: 048
  7. VITAMIN B12 [Concomitant]
     Indication: PRODUCT USED FOR UNKNOWN INDICATION
     Route: 048
  8. FIORICET [Concomitant]
     Indication: PRODUCT USED FOR UNKNOWN INDICATION
     Route: 048
  9. MELOXICAM [Concomitant]
     Indication: PRODUCT USED FOR UNKNOWN INDICATION
     Route: 048
  10. ALPRAZOLAM [Concomitant]
     Indication: ANXIETY
     Dosage: 1.5 TAB AS NEEDED
     Route: 048
  11. CELEXA [Concomitant]
     Indication: DEPRESSION
     Route: 048
  12. DIPHENHIDRAMINE [Concomitant]
     Indication: PRODUCT USED FOR UNKNOWN INDICATION
     Dosage: AT BEDTIME
     Route: 048
  13. VITAMIN D [Concomitant]
     Indication: PRODUCT USED FOR UNKNOWN INDICATION
     Dosage: 1 PILL AT NIGHT TIME
     Route: 048

REACTIONS (1)
  - Hypersensitivity [Recovered/Resolved with Sequelae]
